FAERS Safety Report 25823549 (Version 1)
Quarter: 2025Q3

REPORT INFORMATION
  Report Type: Spontaneous
  Country: US (occurrence: None)
  Receive Date: 20250918
  Receipt Date: 20250918
  Transmission Date: 20251021
  Serious: Yes (Life-Threatening)
  Sender: FDA-CTU
  Company Number: None

PATIENT
  Age: 59 Year
  Sex: Male
  Weight: 102.6 kg

DRUGS (1)
  1. ZOLBETUXIMAB [Suspect]
     Active Substance: ZOLBETUXIMAB
     Indication: Colon cancer
     Dates: start: 20250730, end: 20250730

REACTIONS (2)
  - Aggression [None]
  - Unresponsive to stimuli [None]

NARRATIVE: CASE EVENT DATE: 20250730
